FAERS Safety Report 25063247 (Version 1)
Quarter: 2025Q1

REPORT INFORMATION
  Report Type: Spontaneous
  Country: CH (occurrence: CH)
  Receive Date: 20250311
  Receipt Date: 20250311
  Transmission Date: 20250408
  Serious: Yes (Death, Other)
  Sender: AMGEN
  Company Number: CH-AMGEN-CHESP2025046276

PATIENT
  Age: 7 Year
  Sex: Female

DRUGS (4)
  1. BLINATUMOMAB [Suspect]
     Active Substance: BLINATUMOMAB
     Indication: B-cell type acute leukaemia
     Route: 065
  2. MELPHALAN [Concomitant]
     Active Substance: MELPHALAN
  3. FLUDARABINE [Concomitant]
     Active Substance: FLUDARABINE PHOSPHATE
  4. THIOTEPA [Concomitant]
     Active Substance: THIOTEPA

REACTIONS (2)
  - Adenovirus infection [Fatal]
  - Acute lymphocytic leukaemia recurrent [Unknown]
